FAERS Safety Report 11361656 (Version 2)
Quarter: 2015Q4

REPORT INFORMATION
  Report Type: Report from Study
  Country: US (occurrence: US)
  Receive Date: 20150810
  Receipt Date: 20151105
  Transmission Date: 20160304
  Serious: Yes (Other)
  Sender: FDA-Public Use
  Company Number: US-AMGEN-USASL2015079723

PATIENT
  Age: 62 Year
  Sex: Female

DRUGS (1)
  1. ENBREL [Suspect]
     Active Substance: ETANERCEPT
     Indication: RHEUMATOID ARTHRITIS
     Dosage: 50 MG, QWK
     Route: 065
     Dates: start: 200212

REACTIONS (7)
  - Stress [Unknown]
  - Hip fracture [Unknown]
  - Fall [Unknown]
  - Mobility decreased [Unknown]
  - Spinal osteoarthritis [Unknown]
  - Back injury [Unknown]
  - Psoriasis [Unknown]
